FAERS Safety Report 8587634-8 (Version None)
Quarter: 2012Q3

REPORT INFORMATION
  Report Type: 
  Country: None (occurrence: None)
  Receive Date: 20120811
  Receipt Date: 20120730
  Transmission Date: 20120928
  Serious: No
  Sender: FDA-Public Use
  Company Number: US-ASTRAZENECA-2012SE54058

PATIENT
  Age: 67 Year
  Sex: Male

DRUGS (1)
  1. SYMBICORT [Suspect]
     Dosage: UNKNOWN FREQUENCY
     Route: 055

REACTIONS (5)
  - DRUG DOSE OMISSION [None]
  - COUGH [None]
  - BREATHING-RELATED SLEEP DISORDER [None]
  - DYSPNOEA [None]
  - DRUG INEFFECTIVE [None]
